FAERS Safety Report 20011057 (Version 1)
Quarter: 2021Q4

REPORT INFORMATION
  Report Type: Spontaneous
  Country: ES (occurrence: ES)
  Receive Date: 20211028
  Receipt Date: 20211028
  Transmission Date: 20220303
  Serious: Yes (Other)
  Sender: FDA-Public Use
  Company Number: ES-ALLERGAN-2136029US

PATIENT
  Sex: Female

DRUGS (4)
  1. TIMOLOL [Suspect]
     Active Substance: TIMOLOL
     Indication: Open angle glaucoma
  2. PILOCARPINE HYDROCHLORIDE [Suspect]
     Active Substance: PILOCARPINE HYDROCHLORIDE
     Indication: Open angle glaucoma
  3. BIMATOPROST [Suspect]
     Active Substance: BIMATOPROST
     Indication: Open angle glaucoma
  4. DORZOLAMIDE [Suspect]
     Active Substance: DORZOLAMIDE
     Indication: Open angle glaucoma

REACTIONS (1)
  - Ulcerative keratitis [Unknown]
